FAERS Safety Report 5639494-2 (Version None)
Quarter: 2008Q1

REPORT INFORMATION
  Report Type: 
  Country: None (occurrence: None)
  Receive Date: 20080222
  Receipt Date: 20080214
  Transmission Date: 20080703
  Serious: Yes (Death)
  Sender: FDA-Public Use
  Company Number: 450184-2008-01

PATIENT
  Age: 76 Year
  Sex: Male
  Weight: 83 kg

DRUGS (2)
  1. GLIADEL [Suspect]
     Indication: GLIOBLASTOMA MULTIFORME
     Dosage: 61.6 MG, CEREBRAL IMPLA
     Route: 026
     Dates: start: 20080122
  2. ... [Suspect]

REACTIONS (9)
  - BLOOD AMYLASE INCREASED [None]
  - CARDIO-RESPIRATORY ARREST [None]
  - GRAND MAL CONVULSION [None]
  - HYPOTENSION [None]
  - INFLAMMATION [None]
  - MENINGITIS CHEMICAL [None]
  - NEUROLOGICAL SYMPTOM [None]
  - SEPTIC SHOCK [None]
  - VOMITING [None]
